FAERS Safety Report 7772714-7 (Version None)
Quarter: 2011Q3

REPORT INFORMATION
  Report Type: 
  Country: None (occurrence: None)
  Receive Date: 20110922
  Receipt Date: 20100824
  Transmission Date: 20111222
  Serious: No
  Sender: FDA-Public Use
  Company Number: US-ASTRAZENECA-2006UW07755

PATIENT
  Age: 35 Year
  Sex: Female
  Weight: 88.5 kg

DRUGS (37)
  1. SONATA [Concomitant]
     Route: 065
     Dates: start: 20010101
  2. BENZTROPINE MESYLATE [Concomitant]
     Route: 048
  3. METRONIDAZOLE [Concomitant]
     Route: 065
  4. IBUPROFEN [Concomitant]
     Route: 065
  5. GEMFIBROZIL [Concomitant]
     Route: 065
  6. ABILIFY [Concomitant]
     Route: 048
  7. PAROXETINE HYDROCHLORIDE [Concomitant]
     Route: 065
  8. LEVAQUIN [Concomitant]
     Route: 065
  9. SEROQUEL [Suspect]
     Route: 048
     Dates: start: 20010219
  10. HALDOL [Concomitant]
     Dates: start: 19980101
  11. ZYPREXA/SYMBYAX [Concomitant]
     Dosage: 1 MONTH
  12. TRAZODONE HYDROCHLORIDE [Concomitant]
  13. TOPAMAX [Concomitant]
  14. PROPRANOLOL [Concomitant]
     Route: 065
  15. ATIVAN [Concomitant]
     Route: 065
  16. DROPERIDOL [Concomitant]
     Route: 065
  17. AUGMENTIN '125' [Concomitant]
     Route: 065
  18. SEROQUEL [Suspect]
     Dosage: 25 MG TO 1000 MG
     Route: 048
     Dates: start: 20000101, end: 20080115
  19. GEODON [Concomitant]
     Dates: start: 20080115
  20. ZOMIG [Concomitant]
     Route: 065
     Dates: start: 20010101
  21. LITHIUM [Concomitant]
     Route: 048
  22. RISPERDAL [Concomitant]
     Dosage: 1 MG TO 1000 MG
     Dates: start: 19930101, end: 19970101
  23. METFORMIN [Concomitant]
     Route: 065
  24. LOVASTATIN [Concomitant]
     Route: 065
  25. ZOLOFT [Concomitant]
     Route: 065
  26. SEROQUEL [Suspect]
     Indication: BIPOLAR DISORDER
     Dosage: 25-1000 MG
     Route: 048
     Dates: start: 20000101, end: 20080115
  27. DEPAKOTE [Concomitant]
  28. LEXAPRO [Concomitant]
  29. ACETAMINOPHEN [Concomitant]
     Dosage: 325 MG - 500 MG
     Route: 048
  30. CIPROFLOXACIN [Concomitant]
     Route: 065
  31. ALPRAZOLAM [Concomitant]
     Dosage: 1 MG 1-2 A DAY
     Route: 065
  32. RISPERDAL [Concomitant]
     Dates: start: 20020101
  33. RISPERDAL [Concomitant]
     Dosage: 1 MG TO 1000 MG
     Dates: start: 20060101
  34. XANAX [Concomitant]
  35. EFFEXOR [Concomitant]
  36. PAXIL [Concomitant]
     Route: 048
     Dates: start: 19950101
  37. PEPCID [Concomitant]
     Route: 065

REACTIONS (9)
  - BLOOD CHOLESTEROL INCREASED [None]
  - DIABETIC COMPLICATION [None]
  - OBESITY [None]
  - HYPERLIPIDAEMIA [None]
  - TYPE 2 DIABETES MELLITUS [None]
  - TOOTH LOSS [None]
  - GLYCOSURIA [None]
  - BLOOD TRIGLYCERIDES INCREASED [None]
  - DERMAL CYST [None]
